FAERS Safety Report 5836065-X (Version None)
Quarter: 2008Q3

REPORT INFORMATION
  Report Type: 
  Country: None (occurrence: None)
  Receive Date: 20080806
  Receipt Date: 20080728
  Transmission Date: 20090109
  Serious: Yes (Hospitalization, Other)
  Sender: FDA-Public Use
  Company Number: IN-PFIZER INC-2008063454

PATIENT
  Age: 32 Year
  Sex: Male

DRUGS (1)
  1. SUTENT [Suspect]
     Indication: RENAL CANCER METASTATIC
     Route: 048

REACTIONS (6)
  - ASTHENIA [None]
  - FATIGUE [None]
  - MOUTH ULCERATION [None]
  - PHARYNGEAL ULCERATION [None]
  - URINARY TRACT INFECTION [None]
  - VOMITING [None]
